FAERS Safety Report 22310761 (Version 1)
Quarter: 2023Q2

REPORT INFORMATION
  Report Type: Spontaneous
  Country: FR (occurrence: FR)
  Receive Date: 20230511
  Receipt Date: 20230511
  Transmission Date: 20230722
  Serious: Yes (Hospitalization)
  Sender: FDA-Public Use
  Company Number: None

PATIENT
  Age: 77 Year
  Sex: Female
  Weight: 47 kg

DRUGS (3)
  1. ACETAMINOPHEN [Suspect]
     Active Substance: ACETAMINOPHEN
     Indication: Back pain
     Dosage: 1 GRAM, Q6H
     Route: 065
     Dates: start: 20230407, end: 20230419
  2. REBLOZYL [Suspect]
     Active Substance: LUSPATERCEPT-AAMT
     Indication: Anaemia
     Dosage: 50 MILLIGRAM, Q3W, 1 INJECTION IN TOTAL
     Route: 058
     Dates: start: 20230323, end: 20230323
  3. SKENAN [Suspect]
     Active Substance: MORPHINE SULFATE
     Indication: Back pain
     Dosage: UNK
     Route: 065
     Dates: start: 202304, end: 20230419

REACTIONS (2)
  - Hepatic cytolysis [Recovering/Resolving]
  - Jaundice [Recovering/Resolving]

NARRATIVE: CASE EVENT DATE: 20230419
